FAERS Safety Report 24982757 (Version 2)
Quarter: 2025Q1

REPORT INFORMATION
  Report Type: Spontaneous
  Country: JP (occurrence: JP)
  Receive Date: 20250218
  Receipt Date: 20250228
  Transmission Date: 20250409
  Serious: Yes (Death, Life-Threatening, Hospitalization)
  Sender: BAUSCH AND LOMB
  Company Number: JP-OTSUKA-2024_000086

PATIENT
  Age: 80 Year
  Sex: Male

DRUGS (2)
  1. NIFEDIPINE [Suspect]
     Active Substance: NIFEDIPINE
     Indication: Product used for unknown indication
     Route: 065
  2. CILOSTAZOL [Suspect]
     Active Substance: CILOSTAZOL
     Indication: Product used for unknown indication
     Route: 065

REACTIONS (7)
  - Hypotension [Fatal]
  - Intestinal ischaemia [Fatal]
  - Drug level increased [Fatal]
  - Gastric haemorrhage [Fatal]
  - Gastrointestinal necrosis [Fatal]
  - Overdose [Fatal]
  - Therapeutic product effect delayed [Fatal]
